FAERS Safety Report 9511460 (Version 1)
Quarter: 2013Q3

REPORT INFORMATION
  Report Type: Spontaneous
  Country: US (occurrence: None)
  Receive Date: 20130906
  Receipt Date: 20130906
  Transmission Date: 20140515
  Serious: Yes (Other)
  Sender: FDA-Public Use
  Company Number: 2013-US-000023

PATIENT
  Age: 47 Year
  Sex: Female

DRUGS (3)
  1. XYREM (SODIUM OXYBATE) ORAL SOLUTION, 500MG/ML [Suspect]
     Indication: NARCOLEPSY
     Route: 048
     Dates: start: 20120815, end: 2012
  2. GABAPENTIN (GABAPENTIN) [Concomitant]
  3. CYCLOBENZAPRINE (CYCLOBENZAPRINE) [Concomitant]

REACTIONS (6)
  - Autonomic nervous system imbalance [None]
  - Muscle tightness [None]
  - Memory impairment [None]
  - Pain [None]
  - Enuresis [None]
  - Fall [None]
